FAERS Safety Report 13757885 (Version 2)
Quarter: 2017Q3

REPORT INFORMATION
  Report Type: Report from Study
  Country: US (occurrence: US)
  Receive Date: 20170717
  Receipt Date: 20170928
  Transmission Date: 20171127
  Serious: Yes (Hospitalization)
  Sender: FDA-Public Use
  Company Number: US-ACADIA PHARMACEUTICALS INC.-ACA-2017-003504

PATIENT
  Age: 79 Year
  Sex: Male
  Weight: 78.5 kg

DRUGS (3)
  1. NUPLAZID [Suspect]
     Active Substance: PIMAVANSERIN TARTRATE
     Indication: HALLUCINATION
     Dosage: 34 MG, QD
     Route: 048
     Dates: start: 20170513, end: 20170704
  2. NUPLAZID [Suspect]
     Active Substance: PIMAVANSERIN TARTRATE
     Indication: PARKINSON^S DISEASE PSYCHOSIS
     Dosage: 34 MG, QD
     Route: 048
     Dates: start: 20170504, end: 20170510
  3. NUPLAZID [Suspect]
     Active Substance: PIMAVANSERIN TARTRATE
     Indication: DELUSION

REACTIONS (6)
  - Confusional state [Unknown]
  - Bradykinesia [Recovering/Resolving]
  - Somnolence [Unknown]
  - Lethargy [Recovering/Resolving]
  - Delusion [Not Recovered/Not Resolved]
  - Urinary cystectomy [Unknown]

NARRATIVE: CASE EVENT DATE: 201705
